FAERS Safety Report 24434962 (Version 1)
Quarter: 2024Q4

REPORT INFORMATION
  Report Type: Spontaneous
  Country: CN (occurrence: CN)
  Receive Date: 20241014
  Receipt Date: 20241014
  Transmission Date: 20250114
  Serious: Yes (Other)
  Sender: BOEHRINGER INGELHEIM
  Company Number: CN-BoehringerIngelheim-2024-BI-056739

PATIENT
  Age: 81 Year
  Sex: Female
  Weight: 42.0 kg

DRUGS (5)
  1. ATROVENT [Suspect]
     Active Substance: IPRATROPIUM BROMIDE
     Indication: Pneumonitis
     Route: 055
     Dates: start: 20241003, end: 20241003
  2. BUDESONIDE [Suspect]
     Active Substance: BUDESONIDE
     Indication: Pneumonitis
     Route: 055
     Dates: start: 20241003, end: 20241003
  3. ALBUTEROL SULFATE [Suspect]
     Active Substance: ALBUTEROL SULFATE
     Indication: Pneumonitis
     Route: 055
     Dates: start: 20241003, end: 20241003
  4. DOXOFYLLINE [Suspect]
     Active Substance: DOXOFYLLINE
     Indication: Pneumonitis
     Route: 042
     Dates: start: 20241003, end: 20241003
  5. SODIUM CHLORIDE [Concomitant]
     Active Substance: SODIUM CHLORIDE
     Indication: Drug therapy
     Route: 042
     Dates: start: 20241003, end: 20241003

REACTIONS (1)
  - Tremor [Recovered/Resolved]

NARRATIVE: CASE EVENT DATE: 20241003
